FAERS Safety Report 9408494 (Version 3)
Quarter: 2013Q3

REPORT INFORMATION
  Report Type: Spontaneous
  Country: US (occurrence: US)
  Receive Date: 20130716
  Receipt Date: 20130916
  Transmission Date: 20140515
  Serious: Yes (Hospitalization, Other)
  Sender: FDA-Public Use
  Company Number: JPI-P-033407

PATIENT
  Age: 46 Year
  Sex: Male

DRUGS (9)
  1. XYREM [Suspect]
     Indication: NARCOLEPSY
     Route: 048
     Dates: start: 20120417
  2. XYREM [Suspect]
     Indication: INSOMNIA
     Route: 048
     Dates: start: 20120417
  3. METOPROLOL [Suspect]
     Indication: HYPERTENSION
     Dosage: 100 MG (50 MG,2 IN 1 D)
     Route: 048
     Dates: end: 201206
  4. LISINOPRIL [Concomitant]
  5. HYDROCHLOROTHIAZIDE [Concomitant]
  6. MORPHINE SULFATE [Concomitant]
  7. OMEPRAZOLE [Concomitant]
  8. BUPROPION HYDROCHLORIDE [Concomitant]
  9. TIZANIDINE HYDROCHLORIDE [Concomitant]

REACTIONS (7)
  - Hypotension [None]
  - Fall [None]
  - Dizziness [None]
  - Heart rate decreased [None]
  - Dehydration [None]
  - Loss of consciousness [None]
  - Fluid intake reduced [None]
